FAERS Safety Report 14980996 (Version 1)
Quarter: 2018Q2

REPORT INFORMATION
  Report Type: Spontaneous
  Country: US (occurrence: US)
  Receive Date: 20180515
  Receipt Date: 20180515
  Transmission Date: 20180711
  Serious: Yes (Disabling, Other)
  Sender: FDA-Public Use
  Company Number: None

PATIENT
  Age: 49 Year
  Sex: Female
  Weight: 80.29 kg

DRUGS (11)
  1. HYOSCYAMINE 0.125MG TAB SL VIRTUS PHARMACE [Suspect]
     Active Substance: HYOSCYAMINE
     Indication: GASTROINTESTINAL PAIN
     Dosage: ?          QUANTITY:1 DF DOSAGE FORM;?
     Route: 048
     Dates: start: 20150106, end: 20160108
  2. HYOSCYAMINE 0.125MG TAB SL VIRTUS PHARMACE [Suspect]
     Active Substance: HYOSCYAMINE
     Indication: GASTRIC DISORDER
     Dosage: ?          QUANTITY:1 DF DOSAGE FORM;?
     Route: 048
     Dates: start: 20150106, end: 20160108
  3. HYOSCYAMINE 0.125MG TAB SL VIRTUS PHARMACE [Suspect]
     Active Substance: HYOSCYAMINE
     Indication: PEPTIC ULCER
  4. HYOSCYAMINE 0.125MG TAB SL VIRTUS PHARMACE [Suspect]
     Active Substance: HYOSCYAMINE
     Indication: ABDOMINAL PAIN UPPER
  5. HYOSCYAMINE 0.125MG TAB SL VIRTUS PHARMACE [Suspect]
     Active Substance: HYOSCYAMINE
     Indication: GASTRIC DISORDER
  6. HYOSCYAMINE 0.125MG TAB SL VIRTUS PHARMACE [Suspect]
     Active Substance: HYOSCYAMINE
     Indication: PEPTIC ULCER
     Dosage: ?          QUANTITY:1 DF DOSAGE FORM;?
     Route: 048
     Dates: start: 20150106, end: 20160108
  7. HYOSCYAMINE 0.125MG TAB SL VIRTUS PHARMACE [Suspect]
     Active Substance: HYOSCYAMINE
     Indication: GASTROINTESTINAL DISORDER
     Dosage: ?          QUANTITY:1 DF DOSAGE FORM;?
     Route: 048
     Dates: start: 20150106, end: 20160108
  8. HYOSCYAMINE 0.125MG TAB SL VIRTUS PHARMACE [Suspect]
     Active Substance: HYOSCYAMINE
     Indication: ABDOMINAL PAIN UPPER
     Dosage: ?          QUANTITY:1 DF DOSAGE FORM;?
     Route: 048
     Dates: start: 20150106, end: 20160108
  9. HYOSCYAMINE 0.125MG TAB SL VIRTUS PHARMACE [Suspect]
     Active Substance: HYOSCYAMINE
     Indication: INCONTINENCE
     Dosage: ?          QUANTITY:1 DF DOSAGE FORM;?
     Route: 048
     Dates: start: 20150106, end: 20160108
  10. HYOSCYAMINE 0.125MG TAB SL VIRTUS PHARMACE [Suspect]
     Active Substance: HYOSCYAMINE
     Indication: GASTROINTESTINAL PAIN
  11. HYOSCYAMINE 0.125MG TAB SL VIRTUS PHARMACE [Suspect]
     Active Substance: HYOSCYAMINE
     Indication: GASTROINTESTINAL DISORDER

REACTIONS (3)
  - Idiopathic orbital inflammation [None]
  - Visual impairment [None]
  - Suicide attempt [None]

NARRATIVE: CASE EVENT DATE: 20060613
